FAERS Safety Report 4909144-9 (Version None)
Quarter: 2006Q1

REPORT INFORMATION
  Report Type: 
  Country: None (occurrence: None)
  Receive Date: 20060208
  Receipt Date: 20060201
  Transmission Date: 20060701
  Serious: Yes (Other)
  Sender: FDA-Public Use
  Company Number: SUS1-2006-00125

PATIENT
  Sex: Male

DRUGS (1)
  1. ADDERALL XR 30 [Suspect]

REACTIONS (1)
  - HOMICIDE [None]
